FAERS Safety Report 17727377 (Version 3)
Quarter: 2022Q1

REPORT INFORMATION
  Report Type: Spontaneous
  Country: ES (occurrence: ES)
  Receive Date: 20200430
  Receipt Date: 20220120
  Transmission Date: 20220423
  Serious: Yes (Other)
  Sender: FDA-Public Use
  Company Number: ES-MLMSERVICE-20200416-2262310-1

PATIENT
  Age: 38 Year
  Sex: Male

DRUGS (12)
  1. RISPERIDONE [Suspect]
     Active Substance: RISPERIDONE
     Indication: Persecutory delusion
     Dosage: 3 MILLIGRAM, ONCE A DAY
     Route: 065
  2. RISPERIDONE [Suspect]
     Active Substance: RISPERIDONE
     Indication: Psychotic symptom
     Dosage: 3 MILLIGRAM, ONCE A DAY
     Route: 065
  3. RISPERIDONE [Suspect]
     Active Substance: RISPERIDONE
     Indication: Restlessness
  4. RISPERIDONE [Suspect]
     Active Substance: RISPERIDONE
     Indication: Hallucination
  5. RISPERIDONE [Suspect]
     Active Substance: RISPERIDONE
     Indication: Hallucination, auditory
  6. RISPERIDONE [Suspect]
     Active Substance: RISPERIDONE
     Indication: Irritability
  7. OLANZAPINE [Suspect]
     Active Substance: OLANZAPINE
     Indication: Substance-induced psychotic disorder
     Dosage: 15 MILLIGRAM, ONCE A DAY
     Route: 065
  8. QUETIAPINE [Suspect]
     Active Substance: QUETIAPINE
     Indication: Substance-induced psychotic disorder
     Dosage: 250 MILLIGRAM, ONCE A DAY
     Route: 065
  9. ASENAPINE [Suspect]
     Active Substance: ASENAPINE
     Indication: Substance-induced psychotic disorder
     Dosage: 10 MILLIGRAM, ONCE A DAY
     Route: 065
  10. PALIPERIDONE [Suspect]
     Active Substance: PALIPERIDONE
     Indication: Substance-induced psychotic disorder
     Dosage: 6 MILLIGRAM, DAILY
     Route: 065
  11. METHADONE [Concomitant]
     Active Substance: METHADONE HYDROCHLORIDE
     Indication: Substance use disorder
     Dosage: 60 MILLIGRAM, ONCE A DAY
     Route: 065
  12. PREGABALIN [Concomitant]
     Active Substance: PREGABALIN
     Indication: Anxiety disorder
     Dosage: 150 MILLIGRAM, ONCE A DAY
     Route: 065

REACTIONS (5)
  - Extrapyramidal disorder [Unknown]
  - Drug intolerance [Unknown]
  - Somnolence [Unknown]
  - Taste disorder [Recovered/Resolved]
  - Off label use [Unknown]
